FAERS Safety Report 7342555-3 (Version None)
Quarter: 2011Q1

REPORT INFORMATION
  Report Type: 
  Country: None (occurrence: None)
  Receive Date: 20110310
  Receipt Date: 20110310
  Transmission Date: 20110831
  Serious: Yes (Hospitalization)
  Sender: FDA-Public Use
  Company Number: PHHO2009JP07273

PATIENT
  Sex: Female
  Weight: 53 kg

DRUGS (5)
  1. FTY [Suspect]
     Dosage: 1.25 MG, UNK
     Route: 048
     Dates: start: 20090610
  2. MAGLAX [Concomitant]
     Indication: CONSTIPATION
     Dosage: UNK
  3. BIOFERMIN [Concomitant]
     Indication: CONSTIPATION
     Dosage: UNK
  4. DEPAS [Concomitant]
     Indication: INSOMNIA
     Dosage: UNK
  5. GASMOTIN [Concomitant]
     Indication: CONSTIPATION
     Dosage: UNK

REACTIONS (5)
  - MALAISE [None]
  - DISCOMFORT [None]
  - HEART RATE DECREASED [None]
  - ATRIOVENTRICULAR BLOCK SECOND DEGREE [None]
  - BRADYCARDIA [None]
